FAERS Safety Report 9373444 (Version 2)
Quarter: 2013Q3

REPORT INFORMATION
  Report Type: Spontaneous
  Country: CA (occurrence: CA)
  Receive Date: 20130627
  Receipt Date: 20130801
  Transmission Date: 20140515
  Serious: Yes (Death)
  Sender: FDA-Public Use
  Company Number: CA-009507513-1306CAN009816

PATIENT
  Age: 76 Year
  Sex: Male

DRUGS (1)
  1. ONCOTICE [Suspect]
     Indication: BLADDER CANCER
     Dosage: 50 MG, TIW
     Route: 042
     Dates: start: 2011

REACTIONS (2)
  - Death [Fatal]
  - Malaise [Unknown]
